FAERS Safety Report 16134718 (Version 1)
Quarter: 2019Q1

REPORT INFORMATION
  Report Type: Report from Study
  Country: CA (occurrence: CA)
  Receive Date: 20190329
  Receipt Date: 20190329
  Transmission Date: 20190418
  Serious: Yes (Hospitalization)
  Sender: FDA-Public Use
  Company Number: CA-TAIHO ONCOLOGY  INC-EU-2019-00952

PATIENT
  Age: 67 Year
  Sex: Male
  Weight: 68.2 kg

DRUGS (14)
  1. IMODIUM [Concomitant]
     Active Substance: LOPERAMIDE HYDROCHLORIDE
  2. LONSURF [Suspect]
     Active Substance: TIPIRACIL HYDROCHLORIDE\TRIFLURIDINE
     Indication: COLORECTAL CANCER METASTATIC
     Dosage: CURRENT CYCLE 1
     Route: 048
     Dates: start: 20190215, end: 20190219
  3. GABAPENTIN. [Concomitant]
     Active Substance: GABAPENTIN
  4. BELL SHARK OIL [Concomitant]
  5. HYOSCINE BUTYLBROMIDE [Concomitant]
     Active Substance: BUTYLSCOPOLAMINE
  6. HALOPERIDOL. [Concomitant]
     Active Substance: HALOPERIDOL
  7. PROCHLORPERAZINE. [Concomitant]
     Active Substance: PROCHLORPERAZINE
  8. METOCHLOPRAMIDE [Concomitant]
     Active Substance: METOCLOPRAMIDE HYDROCHLORIDE
  9. HYDROMORPHONE [Concomitant]
     Active Substance: HYDROMORPHONE
  10. DEXAMETHASONE. [Concomitant]
     Active Substance: DEXAMETHASONE
  11. METHYLPHENIDATE. [Concomitant]
     Active Substance: METHYLPHENIDATE
  12. MIRTAZAPINE. [Concomitant]
     Active Substance: MIRTAZAPINE
     Dosage: EVENINGS
  13. PANTOPRAZOLE [Concomitant]
     Active Substance: PANTOPRAZOLE
  14. HYDROMORPHONE [Concomitant]
     Active Substance: HYDROMORPHONE

REACTIONS (7)
  - Transfusion [Unknown]
  - Decreased appetite [Unknown]
  - Pyrexia [Unknown]
  - Liver disorder [Unknown]
  - Malaise [Unknown]
  - Fatigue [Unknown]
  - Asthenia [Unknown]

NARRATIVE: CASE EVENT DATE: 201902
